FAERS Safety Report 12280546 (Version 1)
Quarter: 2016Q2

REPORT INFORMATION
  Report Type: Spontaneous
  Country: US (occurrence: None)
  Receive Date: 20160418
  Receipt Date: 20160418
  Transmission Date: 20160815
  Serious: No
  Sender: FDA-Public Use
  Company Number: None

PATIENT
  Age: 42 Year
  Sex: Female
  Weight: 80.29 kg

DRUGS (5)
  1. EFFEXOR XR [Concomitant]
     Active Substance: VENLAFAXINE HYDROCHLORIDE
  2. CELEBREX [Concomitant]
     Active Substance: CELECOXIB
  3. CONTRAVE [Suspect]
     Active Substance: BUPROPION HYDROCHLORIDE\NALTREXONE HYDROCHLORIDE
     Indication: WEIGHT LOSS DIET
     Dosage: 1/1 QAM 1ST WK 1/1 QA.M 1PM 2ND WK MOUTH
     Route: 048
     Dates: start: 20160326, end: 20160405
  4. MELATONIN [Concomitant]
     Active Substance: MELATONIN
  5. COQ10 [Concomitant]
     Active Substance: UBIDECARENONE

REACTIONS (2)
  - Breast cyst [None]
  - Breast pain [None]

NARRATIVE: CASE EVENT DATE: 20160405
